FAERS Safety Report 4691340-X (Version None)
Quarter: 2005Q2

REPORT INFORMATION
  Report Type: 
  Country: None (occurrence: None)
  Receive Date: 20050615
  Receipt Date: 20050610
  Transmission Date: 20051028
  Serious: Yes (Life-Threatening, Hospitalization)
  Sender: FDA-Public Use
  Company Number: US-MERCK-0506USA01800

PATIENT
  Age: 67 Year
  Sex: Male

DRUGS (3)
  1. PROSCAR [Suspect]
     Indication: PROSTATIC DISORDER
     Route: 048
     Dates: start: 20000101, end: 20030101
  2. [THERAPY UNSPECIFIED] [Concomitant]
     Route: 065
  3. CELEBREX [Concomitant]
     Route: 065

REACTIONS (2)
  - BREAST CANCER [None]
  - BREAST CANCER MALE [None]
